FAERS Safety Report 8786490 (Version 1)
Quarter: 2012Q4

REPORT INFORMATION
  Report Type: 
  Country: BR (occurrence: BR)
  Receive Date: 20120914
  Receipt Date: 20120914
  Transmission Date: 20130627
  Serious: Yes (Other)
  Sender: FDA-Public Use
  Company Number: PHHY2012BR077976

PATIENT
  Age: 36 Year
  Sex: Female
  Weight: 68 kg

DRUGS (10)
  1. METFORMIN\VILDAGLIPTIN [Suspect]
     Dosage: 1 DF, BID (Vildagliptin 50mg and metformin 500mg)
  2. OCTREOTIDE [Suspect]
     Dosage: 20 mg, QMO
     Route: 030
  3. OCTREOTIDE [Suspect]
     Dosage: 30 mg, QMO
     Route: 030
  4. METFORMIN [Suspect]
     Dosage: 750 mg daily
  5. METFORMIN [Suspect]
     Dosage: 1500 mg daily
  6. PREDNISONE [Concomitant]
     Dosage: 5 mg daily
  7. PREDNISONE [Concomitant]
     Dosage: 7.5 mg daily
  8. GLICLAZIDE [Concomitant]
     Dosage: 60 mg daily
  9. LEVOTHYROXINE [Concomitant]
     Dosage: 50 mcg daily
  10. LEVOTHYROXINE [Concomitant]
     Dosage: 75 mcg daily

REACTIONS (10)
  - Cholelithiasis [Unknown]
  - Blood growth hormone increased [Unknown]
  - Insulin-like growth factor increased [Unknown]
  - Blood cortisol decreased [Unknown]
  - Red blood cell count decreased [Unknown]
  - Blood glucose increased [Recovering/Resolving]
  - Glycosylated haemoglobin increased [Unknown]
  - Haemoglobin decreased [Unknown]
  - Haematocrit decreased [Unknown]
  - Drug intolerance [Unknown]
